FAERS Safety Report 9188402 (Version 1)
Quarter: 2013Q1

REPORT INFORMATION
  Report Type: Spontaneous
  Country: US (occurrence: US)
  Receive Date: 20130325
  Receipt Date: 20130325
  Transmission Date: 20140127
  Serious: No
  Sender: FDA-Public Use
  Company Number: US-MYLANLABS-2012S1025327

PATIENT
  Sex: Male

DRUGS (3)
  1. LEVOFLOXACIN [Suspect]
  2. SEPTRA [Suspect]
  3. NORFLEX [Suspect]

REACTIONS (1)
  - Abdominal discomfort [Not Recovered/Not Resolved]
